FAERS Safety Report 10067046 (Version 2)
Quarter: 2014Q2

REPORT INFORMATION
  Report Type: Spontaneous
  Country: US (occurrence: US)
  Receive Date: 20140409
  Receipt Date: 20140414
  Transmission Date: 20141212
  Serious: No
  Sender: FDA-Public Use
  Company Number: US-BIOGENIDEC-2013BI073005

PATIENT
  Age: 50 Year
  Sex: Female

DRUGS (3)
  1. AVONEX [Suspect]
     Indication: MULTIPLE SCLEROSIS
     Route: 030
  2. AVONEX [Suspect]
     Indication: MULTIPLE SCLEROSIS
     Route: 030
     Dates: start: 20120106, end: 20130630
  3. AVONEX [Suspect]
     Indication: MULTIPLE SCLEROSIS
     Route: 030
     Dates: start: 20130517, end: 20130705

REACTIONS (6)
  - Impaired gastric emptying [Not Recovered/Not Resolved]
  - Gastrointestinal tube insertion [Not Recovered/Not Resolved]
  - Mobility decreased [Recovered/Resolved]
  - Influenza like illness [Unknown]
  - Pyrexia [Recovered/Resolved]
  - Vomiting [Recovered/Resolved]
